FAERS Safety Report 20906530 (Version 1)
Quarter: 2022Q2

REPORT INFORMATION
  Report Type: Spontaneous
  Country: US (occurrence: None)
  Receive Date: 20220602
  Receipt Date: 20220602
  Transmission Date: 20220721
  Serious: Yes (Disabling, Other)
  Sender: FDA-Public Use
  Company Number: None

PATIENT
  Age: 29 Year
  Sex: Male
  Weight: 93.6 kg

DRUGS (1)
  1. ABILIFY [Suspect]
     Active Substance: ARIPIPRAZOLE
     Indication: Affective disorder
     Dosage: OTHER QUANTITY : 1 TABLET(S);?FREQUENCY : AT BEDTIME;?
     Route: 048
     Dates: start: 20100101

REACTIONS (5)
  - Weight increased [None]
  - Asthma [None]
  - Sleep apnoea syndrome [None]
  - Blood pressure increased [None]
  - Glucose tolerance impaired [None]

NARRATIVE: CASE EVENT DATE: 20170327
